FAERS Safety Report 5072490-5 (Version None)
Quarter: 2006Q3

REPORT INFORMATION
  Report Type: 
  Country: None (occurrence: None)
  Receive Date: 20060807
  Receipt Date: 20060531
  Transmission Date: 20061208
  Serious: Yes (Life-Threatening, Hospitalization)
  Sender: FDA-Public Use
  Company Number: 2006AP02481

PATIENT
  Age: 17488 Day
  Sex: Male

DRUGS (10)
  1. XYLOCAINE W/ EPINEPHRINE [Suspect]
     Indication: LOCAL ANAESTHESIA
     Dosage: 1:1 DILUTION IN NORMAL SALINE
     Route: 058
     Dates: start: 20050830, end: 20050830
  2. BOSMIN [Suspect]
     Dosage: GAUZE
     Route: 045
     Dates: start: 20050830, end: 20050830
  3. PROPOFOL [Concomitant]
     Indication: INDUCTION OF ANAESTHESIA
     Route: 042
     Dates: start: 20050830, end: 20050830
  4. PROPOFOL [Concomitant]
     Indication: GENERAL ANAESTHESIA
     Route: 042
     Dates: start: 20050830, end: 20050830
  5. FENTANEST [Concomitant]
     Indication: INDUCTION OF ANAESTHESIA
     Route: 042
     Dates: start: 20050830, end: 20050830
  6. FENTANEST [Concomitant]
     Indication: GENERAL ANAESTHESIA
     Route: 042
     Dates: start: 20050830, end: 20050830
  7. MUSCULAX [Concomitant]
     Indication: INDUCTION OF ANAESTHESIA
     Route: 042
     Dates: start: 20050830, end: 20050830
  8. MUSCULAX [Concomitant]
     Indication: GENERAL ANAESTHESIA
     Route: 042
     Dates: start: 20050830, end: 20050830
  9. SEVOFLURANE [Concomitant]
     Indication: MAINTENANCE OF ANAESTHESIA
     Dosage: ALSO MAINTAINED WITH AIR AND OXYGEN
     Route: 055
     Dates: start: 20050830, end: 20050830
  10. SEVOFLURANE [Concomitant]
     Indication: GENERAL ANAESTHESIA
     Dosage: ALSO MAINTAINED WITH AIR AND OXYGEN
     Route: 055
     Dates: start: 20050830, end: 20050830

REACTIONS (8)
  - ANAESTHETIC COMPLICATION CARDIAC [None]
  - CARDIAC DISORDER [None]
  - CARDIOMYOPATHY [None]
  - ELECTROMECHANICAL DISSOCIATION [None]
  - MUSCLE SPASMS [None]
  - PULSE ABSENT [None]
  - VENTRICULAR EXTRASYSTOLES [None]
  - VENTRICULAR TACHYCARDIA [None]
